FAERS Safety Report 18951036 (Version 1)
Quarter: 2021Q1

REPORT INFORMATION
  Report Type: Spontaneous
  Country: US (occurrence: US)
  Receive Date: 20210228
  Receipt Date: 20210228
  Transmission Date: 20210420
  Serious: No
  Sender: FDA-Public Use
  Company Number: US-ROCHE-2709300

PATIENT
  Sex: Female
  Weight: 61.9 kg

DRUGS (5)
  1. SYMBICORT [Concomitant]
     Active Substance: BUDESONIDE\FORMOTEROL FUMARATE DIHYDRATE
     Dosage: 160 MCG/4.5 MCG; 2 PUFFS TWICE DAILY
     Dates: start: 201510
  2. XOLAIR [Suspect]
     Active Substance: OMALIZUMAB
     Indication: ASTHMA
     Dosage: THERAPY ONGOING: NO
     Route: 058
     Dates: start: 201801, end: 201806
  3. DULERA [Concomitant]
     Active Substance: FORMOTEROL FUMARATE DIHYDRATE\MOMETASONE FUROATE
     Dosage: 200 MCG/5 MCG; 2 PUFFS TWICE DAILY
     Dates: start: 201606
  4. MONTELUKAST [Concomitant]
     Active Substance: MONTELUKAST SODIUM
     Dosage: CHEW 1 TABLET ONCE DAILY IN THE EVENING ;ONGOING: YES
     Route: 048
     Dates: start: 201409
  5. XOLAIR [Suspect]
     Active Substance: OMALIZUMAB
     Dosage: THERAPY ONGOING: NO
     Route: 058
     Dates: start: 201903, end: 20191004

REACTIONS (3)
  - Off label use [Unknown]
  - Intentional product use issue [Unknown]
  - No adverse event [Unknown]
